FAERS Safety Report 6522401-8 (Version None)
Quarter: 2009Q4

REPORT INFORMATION
  Report Type: 
  Country: None (occurrence: None)
  Receive Date: 20091230
  Receipt Date: 20091217
  Transmission Date: 20100525
  Serious: Yes (Hospitalization)
  Sender: FDA-Public Use
  Company Number: JP-AMGEN-US379292

PATIENT
  Sex: Male
  Weight: 50 kg

DRUGS (16)
  1. ENBREL [Suspect]
     Indication: RHEUMATOID ARTHRITIS
     Route: 058
     Dates: start: 20070711
  2. TACROLIMUS [Suspect]
     Indication: RHEUMATOID ARTHRITIS
     Route: 048
     Dates: end: 20080509
  3. METHOTREXATE [Suspect]
     Indication: RHEUMATOID ARTHRITIS
     Dosage: UNKNOWN
     Route: 048
     Dates: end: 20080509
  4. METHOTREXATE [Suspect]
     Dosage: UNKNOWN
     Route: 048
     Dates: start: 20080523
  5. FOLIC ACID [Concomitant]
     Route: 048
  6. PREDNISOLONE [Concomitant]
     Indication: RHEUMATOID ARTHRITIS
     Dosage: 10 MG
     Route: 048
     Dates: start: 20070306
  7. PREDNISOLONE [Concomitant]
     Dosage: 20 MG
     Dates: end: 20070428
  8. PREDNISOLONE [Concomitant]
     Dosage: 30 MG
     Dates: start: 20070428
  9. MICARDIS [Concomitant]
     Route: 048
  10. VOLTAREN [Concomitant]
     Route: 048
  11. OMEPRAL [Concomitant]
     Route: 048
  12. LOXONIN [Concomitant]
     Dosage: UNKNOWN
     Route: 048
  13. MUCOSTA [Concomitant]
     Dosage: UNKNOWN
     Route: 048
  14. BONALON [Concomitant]
     Route: 048
  15. CLARITH [Concomitant]
     Route: 048
  16. NIFEDIPINE [Concomitant]
     Route: 048

REACTIONS (1)
  - HERPES ZOSTER [None]
